FAERS Safety Report 9196310 (Version 2)
Quarter: 2013Q2

REPORT INFORMATION
  Report Type: Spontaneous
  Country: US (occurrence: US)
  Receive Date: 20130328
  Receipt Date: 20130430
  Transmission Date: 20140414
  Serious: Yes (Death, Other)
  Sender: FDA-Public Use
  Company Number: US-ASTELLAS-2013US003329

PATIENT
  Age: 55 Year
  Sex: Male

DRUGS (1)
  1. PROGRAF [Suspect]
     Indication: LUNG TRANSPLANT
     Dosage: 3 MG, BID
     Route: 048
     Dates: start: 20100711, end: 20130126

REACTIONS (14)
  - Off label use [Unknown]
  - Complications of transplanted lung [Unknown]
  - Obliterative bronchiolitis [Unknown]
  - Small intestinal obstruction [Unknown]
  - Renal failure chronic [Unknown]
  - Left ventricular hypertrophy [Unknown]
  - Gastrointestinal haemorrhage [Unknown]
  - Polyp [Unknown]
  - Sinusitis [Unknown]
  - Hyperkalaemia [Unknown]
  - Dehydration [Unknown]
  - Weight decreased [Unknown]
  - Cystic fibrosis [Fatal]
  - Pneumonia [Fatal]
